FAERS Safety Report 9247942 (Version 1)
Quarter: 2013Q2

REPORT INFORMATION
  Report Type: Spontaneous
  Country: US (occurrence: US)
  Receive Date: 20130423
  Receipt Date: 20130423
  Transmission Date: 20140414
  Serious: Yes (Death)
  Sender: FDA-Public Use
  Company Number: US-PFIZER INC-2013125129

PATIENT
  Age: 51 Year
  Sex: Male

DRUGS (1)
  1. CAMPTOSAR [Suspect]
     Indication: COLON CANCER
     Dosage: 320 MG, EVERY 2 WEEKS
     Dates: start: 20120402, end: 20121206

REACTIONS (2)
  - Disease progression [Fatal]
  - Colon cancer [Fatal]
